FAERS Safety Report 19752772 (Version 11)
Quarter: 2024Q4

REPORT INFORMATION
  Report Type: Report from Study
  Country: CA (occurrence: CA)
  Receive Date: 20210826
  Receipt Date: 20241209
  Transmission Date: 20250115
  Serious: Yes (Other)
  Sender: NOVARTIS
  Company Number: PHHY2019CA199514

PATIENT
  Age: 11 Year
  Sex: Female

DRUGS (13)
  1. ILARIS [Suspect]
     Active Substance: CANAKINUMAB
     Indication: Cryopyrin associated periodic syndrome
     Dosage: 70 OT, EVERY 8 WEEKS
     Route: 058
     Dates: start: 20190822
  2. ILARIS [Suspect]
     Active Substance: CANAKINUMAB
     Indication: Muckle-Wells syndrome
     Dosage: 85 OT, EVERY 8 WEEKS
     Route: 058
     Dates: start: 20190822
  3. ILARIS [Suspect]
     Active Substance: CANAKINUMAB
     Dosage: 50 OT, (8 WEEKS)
     Route: 058
     Dates: start: 20191017
  4. ILARIS [Suspect]
     Active Substance: CANAKINUMAB
     Dosage: 50 OT, (8 WEEKS)
     Route: 058
     Dates: start: 20191212
  5. ILARIS [Suspect]
     Active Substance: CANAKINUMAB
     Dosage: 50 OT (8 WEEKS)
     Route: 058
     Dates: start: 20200204
  6. ILARIS [Suspect]
     Active Substance: CANAKINUMAB
     Dosage: 50 MG (8 WEEKS)
     Route: 058
     Dates: start: 20200527
  7. ILARIS [Suspect]
     Active Substance: CANAKINUMAB
     Dosage: 50 MG (8 WEEKS)
     Route: 058
     Dates: start: 20210107
  8. ILARIS [Suspect]
     Active Substance: CANAKINUMAB
     Dosage: 70 MG (8 WEEKS)
     Route: 058
  9. ILARIS [Suspect]
     Active Substance: CANAKINUMAB
     Dosage: 70 MG (8 WEEKS)
     Route: 058
     Dates: start: 20210304
  10. ILARIS [Suspect]
     Active Substance: CANAKINUMAB
     Dosage: 70 MG, EVERY 8 WEEKS
     Route: 058
     Dates: start: 20210819
  11. ILARIS [Suspect]
     Active Substance: CANAKINUMAB
     Dosage: UNK
     Route: 065
     Dates: start: 20211014
  12. ILARIS [Suspect]
     Active Substance: CANAKINUMAB
     Dosage: 85 MG, EVERY 8 WEEKS
     Route: 065
  13. ILARIS [Suspect]
     Active Substance: CANAKINUMAB
     Dosage: 90 MG, EVERY 8 WEEKS
     Route: 058

REACTIONS (10)
  - Oral herpes [Unknown]
  - Blood pressure decreased [Unknown]
  - Weight increased [Unknown]
  - Gastrointestinal disorder [Unknown]
  - Urticaria [Unknown]
  - Headache [Unknown]
  - Stress [Unknown]
  - Aphthous ulcer [Not Recovered/Not Resolved]
  - Mouth ulceration [Unknown]
  - Affective disorder [Unknown]

NARRATIVE: CASE EVENT DATE: 20190822
